FAERS Safety Report 8329702-1 (Version None)
Quarter: 2012Q2

REPORT INFORMATION
  Report Type: 
  Country: None (occurrence: None)
  Receive Date: 20120502
  Receipt Date: 20120313
  Transmission Date: 20120825
  Serious: Yes (Hospitalization)
  Sender: FDA-Public Use
  Company Number: JP-GLAXOSMITHKLINE-B0788967A

PATIENT
  Sex: Male

DRUGS (1)
  1. LAMICTAL [Suspect]
     Indication: EPILEPSY
     Dosage: 25MG PER DAY
     Route: 048
     Dates: start: 20111102, end: 20111113

REACTIONS (9)
  - ARTHRALGIA [None]
  - HAEMATOCRIT DECREASED [None]
  - ILL-DEFINED DISORDER [None]
  - GENERALISED ERYTHEMA [None]
  - DRUG ERUPTION [None]
  - PYREXIA [None]
  - BLOOD COUNT ABNORMAL [None]
  - WHITE BLOOD CELL COUNT DECREASED [None]
  - LYMPHOCYTE STIMULATION TEST POSITIVE [None]
